FAERS Safety Report 11852339 (Version 1)
Quarter: 2015Q4

REPORT INFORMATION
  Report Type: Report from Study
  Country: CA (occurrence: CA)
  Receive Date: 20151218
  Receipt Date: 20151218
  Transmission Date: 20160305
  Serious: Yes (Other)
  Sender: FDA-Public Use
  Company Number: CA-DUCHESNAY INC.-1045658

PATIENT
  Age: 20 Year
  Sex: Female
  Weight: 81.82 kg

DRUGS (4)
  1. DICLEGIS [Suspect]
     Active Substance: DOXYLAMINE SUCCINATE\PYRIDOXINE HYDROCHLORIDE
     Route: 048
  2. PRENATAL VITAMINS (UNSPECIFIED) [Concomitant]
     Route: 048
     Dates: start: 20120912
  3. RANITIDINE [Concomitant]
     Active Substance: RANITIDINE\RANITIDINE HYDROCHLORIDE
     Route: 048
  4. DIMENHYDRATE [Concomitant]

REACTIONS (2)
  - Abortion spontaneous [Recovered/Resolved]
  - Overdose [None]

NARRATIVE: CASE EVENT DATE: 20130915
